FAERS Safety Report 19163019 (Version 4)
Quarter: 2021Q4

REPORT INFORMATION
  Report Type: Report from Study
  Country: US (occurrence: US)
  Receive Date: 20210421
  Receipt Date: 20211117
  Transmission Date: 20220303
  Serious: Yes (Hospitalization, Other)
  Sender: FDA-Public Use
  Company Number: US-BIOVITRUM-2021US1429

PATIENT
  Age: 65 Year
  Sex: Male

DRUGS (2)
  1. KINERET [Suspect]
     Active Substance: ANAKINRA
     Indication: Gout
     Route: 058
     Dates: start: 20201231
  2. KINERET [Suspect]
     Active Substance: ANAKINRA
     Route: 058
     Dates: start: 20210131

REACTIONS (3)
  - Sepsis [Unknown]
  - Gout [Unknown]
  - Off label use [Unknown]

NARRATIVE: CASE EVENT DATE: 20201231
